FAERS Safety Report 5408080-1 (Version None)
Quarter: 2007Q3

REPORT INFORMATION
  Report Type: 
  Country: None (occurrence: None)
  Receive Date: 20070713
  Receipt Date: 20070518
  Transmission Date: 20080115
  Serious: Yes (Hospitalization, Other)
  Sender: FDA-Public Use
  Company Number: US-JNJFOC-20070305739

PATIENT
  Age: 27 Year
  Sex: Female
  Weight: 85.7298 kg

DRUGS (5)
  1. ORTHO EVRA [Suspect]
     Indication: CONTRACEPTION
     Dosage: TRANSDERMAL
     Route: 062
     Dates: start: 20051004, end: 20051111
  2. AVIANE-21 [Suspect]
     Indication: CONTRACEPTION
     Dates: start: 20051111, end: 20060303
  3. WELLBUTRIN [Concomitant]
  4. IMITREX [Concomitant]
  5. SUDAFED 12 HOUR [Concomitant]

REACTIONS (1)
  - DEEP VEIN THROMBOSIS [None]
